FAERS Safety Report 19136679 (Version 1)
Quarter: 2021Q2

REPORT INFORMATION
  Report Type: Spontaneous
  Country: US (occurrence: US)
  Receive Date: 20210414
  Receipt Date: 20210414
  Transmission Date: 20210717
  Serious: No
  Sender: FDA-Public Use
  Company Number: US-GALDERMA-US2021002904

PATIENT
  Age: 15 Year
  Sex: Female

DRUGS (1)
  1. DIFFERIN GEL [Suspect]
     Active Substance: ADAPALENE
     Indication: PRODUCT USED FOR UNKNOWN INDICATION
     Dosage: 0.1%
     Route: 061
     Dates: start: 20210108, end: 20210128

REACTIONS (7)
  - Application site pain [Not Recovered/Not Resolved]
  - Intentional underdose [Recovered/Resolved]
  - Application site erythema [Not Recovered/Not Resolved]
  - Application site fissure [Not Recovered/Not Resolved]
  - Application site dryness [Not Recovered/Not Resolved]
  - Acne [Not Recovered/Not Resolved]
  - Off label use [Recovered/Resolved]

NARRATIVE: CASE EVENT DATE: 202101
